FAERS Safety Report 14440002 (Version 1)
Quarter: 2018Q1

REPORT INFORMATION
  Report Type: Spontaneous
  Country: EG (occurrence: EG)
  Receive Date: 20180125
  Receipt Date: 20180125
  Transmission Date: 20180509
  Serious: Yes (Hospitalization)
  Sender: FDA-Public Use
  Company Number: EG-NOVOPROD-581740

PATIENT
  Age: 50 Year
  Sex: Male
  Weight: 86 kg

DRUGS (9)
  1. LANTUS [Concomitant]
     Active Substance: INSULIN GLARGINE
     Indication: DIABETES MELLITUS
     Dosage: 40 U, QD (40 UNIT PER DAY)
     Route: 058
  2. DIGEST-EZE [Concomitant]
     Active Substance: DIETARY SUPPLEMENT
     Indication: GASTROINTESTINAL DISORDER
     Dosage: 2 TAB, TID
     Route: 048
  3. LOPID [Concomitant]
     Active Substance: GEMFIBROZIL
     Indication: DIABETES MELLITUS
     Dosage: 1 TAB, SINGLE
     Route: 048
  4. DEPOVIT B12 [Concomitant]
     Indication: NEUROPATHY PERIPHERAL
     Dosage: 1 AMPOULE / WEEK
     Route: 030
  5. CONTROLOC [Concomitant]
     Active Substance: PANTOPRAZOLE SODIUM
     Indication: GASTRIC ULCER
     Dosage: 1 TAB, SINGLE
     Route: 048
  6. FEBURIC [Concomitant]
     Active Substance: FEBUXOSTAT
     Indication: RENAL IMPAIRMENT
     Dosage: 1 TAB, SINGLE
     Route: 048
  7. MIXTARD 30 HM PENFILL [Suspect]
     Active Substance: INSULIN HUMAN
     Indication: DIABETES MELLITUS
     Dosage: 80 IU, BID (80 UNIT MORNING,80 UNIT NIGHT)
     Route: 058
  8. NOVORAPID [Suspect]
     Active Substance: INSULIN ASPART
     Indication: DIABETES MELLITUS
     Dosage: 35 U, QID  (35 U (4 TIMES DAILY))
     Route: 058
  9. ATOR [Concomitant]
     Active Substance: ATORVASTATIN CALCIUM
     Indication: HYPERLIPIDAEMIA
     Dosage: 2 TAB, QD
     Route: 048

REACTIONS (3)
  - Hepatic fibrosis [Not Recovered/Not Resolved]
  - Pancreatic fibrosis [Not Recovered/Not Resolved]
  - Blood glucose increased [Unknown]

NARRATIVE: CASE EVENT DATE: 20170113
